FAERS Safety Report 26058428 (Version 1)
Quarter: 2025Q4

REPORT INFORMATION
  Report Type: Spontaneous
  Country: EU (occurrence: EU)
  Receive Date: 20251118
  Receipt Date: 20251118
  Transmission Date: 20260118
  Serious: Yes (Other)
  Sender: RANBAXY
  Company Number: EU-GENETICSPA-GEN_20230634

PATIENT
  Age: 78 Year
  Sex: Male

DRUGS (1)
  1. PREGABALIN [Suspect]
     Active Substance: PREGABALIN
     Indication: Product used for unknown indication
     Dosage: 1 DOSAGE FORM
     Route: 048

REACTIONS (10)
  - Cataract subcapsular [Unknown]
  - Shallow anterior chamber [Unknown]
  - Angle closure glaucoma [Unknown]
  - Intraocular pressure increased [Recovered/Resolved]
  - Nausea [Unknown]
  - Vomiting [Unknown]
  - Blepharospasm [Unknown]
  - Corneal oedema [Unknown]
  - Conjunctival hyperaemia [Unknown]
  - Pain [Unknown]

NARRATIVE: CASE EVENT DATE: 20230214
